FAERS Safety Report 6903542-X (Version None)
Quarter: 2010Q3

REPORT INFORMATION
  Report Type: 
  Country: None (occurrence: None)
  Receive Date: 20100803
  Receipt Date: 20081021
  Transmission Date: 20110219
  Serious: No
  Sender: FDA-Public Use
  Company Number: US-PFIZER INC-2008089416

PATIENT
  Sex: Female

DRUGS (3)
  1. LYRICA [Suspect]
     Route: 048
     Dates: start: 20081014
  2. PERCOCET [Interacting]
  3. DRUG, UNSPECIFIED [Interacting]

REACTIONS (3)
  - DRUG INTERACTION [None]
  - HYPERSENSITIVITY [None]
  - URTICARIA [None]
